FAERS Safety Report 8098645-3 (Version None)
Quarter: 2012Q1

REPORT INFORMATION
  Report Type: 
  Country: None (occurrence: None)
  Receive Date: 20120129
  Receipt Date: 20111027
  Transmission Date: 20120608
  Serious: No
  Sender: FDA-Public Use
  Company Number: US-ABBOTT-11P-163-0868917-00

PATIENT
  Age: 59 Year
  Sex: Male

DRUGS (3)
  1. DIOVAN [Concomitant]
     Indication: BLOOD PRESSURE
  2. HUMIRA [Suspect]
     Indication: PSORIATIC ARTHROPATHY
     Dates: start: 20070601
  3. LIPITOR [Concomitant]
     Indication: BLOOD CHOLESTEROL INCREASED

REACTIONS (4)
  - DIZZINESS [None]
  - ERUCTATION [None]
  - FEELING HOT [None]
  - CHEST DISCOMFORT [None]
